FAERS Safety Report 23940872 (Version 1)
Quarter: 2024Q2

REPORT INFORMATION
  Report Type: Spontaneous
  Country: US (occurrence: None)
  Receive Date: 20240604
  Receipt Date: 20240604
  Transmission Date: 20240716
  Serious: No
  Sender: FDA-Public Use
  Company Number: None

PATIENT

DRUGS (1)
  1. XARELTO [Suspect]
     Active Substance: RIVAROXABAN

REACTIONS (5)
  - Device computer issue [None]
  - Product communication issue [None]
  - Product dose omission in error [None]
  - Product dispensing issue [None]
  - Chest pain [None]
